FAERS Safety Report 4865731-8 (Version None)
Quarter: 2005Q4

REPORT INFORMATION
  Report Type: 
  Country: None (occurrence: None)
  Receive Date: 20051220
  Receipt Date: 20051209
  Transmission Date: 20060501
  Serious: Yes (Life-Threatening)
  Sender: FDA-Public Use
  Company Number: 143976USA

PATIENT
  Age: 58 Year
  Sex: Female

DRUGS (1)
  1. CARBOPLATIN [Suspect]
     Indication: OVARIAN CANCER
     Dosage: INTRAVENOUS NOS
     Route: 042
     Dates: start: 20050812

REACTIONS (2)
  - LOSS OF CONSCIOUSNESS [None]
  - OXYGEN SATURATION ABNORMAL [None]
